FAERS Safety Report 25806937 (Version 1)
Quarter: 2025Q3

REPORT INFORMATION
  Report Type: Spontaneous
  Country: US (occurrence: US)
  Receive Date: 20250916
  Receipt Date: 20250916
  Transmission Date: 20251020
  Serious: No
  Sender: BRAEBURN PHARMACEUTICALS
  Company Number: US-BRAEBURN PHARMACEUTICALS-US-BRA-25-000555

PATIENT
  Sex: Male
  Weight: 95.238 kg

DRUGS (6)
  1. BRIXADI [Suspect]
     Active Substance: BUPRENORPHINE
     Indication: Drug use disorder
     Dosage: 128 MILLIGRAM, MONTHLY, USUALLY IN HIS BODY FAT, LEFT OR RIGHT HIP AREA
     Route: 058
     Dates: start: 2025
  2. BRIXADI [Suspect]
     Active Substance: BUPRENORPHINE
     Dosage: 8 MILLIGRAM, SINGLE
     Route: 065
     Dates: start: 2025, end: 2025
  3. GABAPENTIN [Concomitant]
     Active Substance: GABAPENTIN
     Indication: Joint swelling
     Route: 065
  4. LIPITOR [Concomitant]
     Active Substance: ATORVASTATIN CALCIUM
     Indication: Prophylaxis
     Route: 065
  5. MEPERIDINE [Concomitant]
     Active Substance: MEPERIDINE
     Indication: Dyspepsia
     Route: 065
  6. XANAX [Concomitant]
     Active Substance: ALPRAZOLAM
     Indication: Anxiety
     Route: 065

REACTIONS (5)
  - Haematuria [Unknown]
  - Dysuria [Not Recovered/Not Resolved]
  - Pollakiuria [Unknown]
  - Prostatic specific antigen increased [Unknown]
  - Drug withdrawal syndrome [Unknown]

NARRATIVE: CASE EVENT DATE: 20250101
